FAERS Safety Report 21358370 (Version 1)
Quarter: 2022Q3

REPORT INFORMATION
  Report Type: Spontaneous
  Country: US (occurrence: None)
  Receive Date: 20220920
  Receipt Date: 20220920
  Transmission Date: 20221026
  Serious: No
  Sender: FDA-Public Use
  Company Number: None

PATIENT
  Sex: Male

DRUGS (1)
  1. LENALIDOMIDE [Suspect]
     Active Substance: LENALIDOMIDE
     Dosage: FREQUENCY : EVERY OTHER DAY;?
     Route: 048
     Dates: start: 202205

REACTIONS (3)
  - Anger [None]
  - Frustration tolerance decreased [None]
  - Full blood count decreased [None]
